FAERS Safety Report 6723678-6 (Version None)
Quarter: 2010Q2

REPORT INFORMATION
  Report Type: 
  Country: None (occurrence: None)
  Receive Date: 20100505
  Receipt Date: 20090604
  Transmission Date: 20101027
  Serious: Yes (Other)
  Sender: FDA-Public Use
  Company Number: 61280

PATIENT
  Sex: Female

DRUGS (1)
  1. PAMIDRONATE DISODIUM [Suspect]
     Indication: PROSTATE CANCER
     Dosage: 90MG IV
     Route: 042
     Dates: start: 20090602

REACTIONS (1)
  - RENAL FAILURE [None]
